FAERS Safety Report 13832371 (Version 1)
Quarter: 2017Q3

REPORT INFORMATION
  Report Type: Spontaneous
  Country: MX (occurrence: US)
  Receive Date: 20170802
  Receipt Date: 20170802
  Transmission Date: 20171127
  Serious: Yes (Disabling, Other)
  Sender: FDA-Public Use
  Company Number: None

PATIENT
  Age: 32 Year
  Sex: Female
  Weight: 65 kg

DRUGS (3)
  1. LEVOTHYROXINE. [Concomitant]
     Active Substance: LEVOTHYROXINE
  2. KEPPRA [Concomitant]
     Active Substance: LEVETIRACETAM
  3. PAI: OFLOXACIN [Suspect]
     Active Substance: OFLOXACIN
     Indication: URINARY TRACT INFECTION
     Dosage: ?          QUANTITY:1 TABLET(S);?
     Route: 048

REACTIONS (9)
  - Hypoaesthesia [None]
  - Sleep attacks [None]
  - Heart rate abnormal [None]
  - Arrhythmia [None]
  - Arthralgia [None]
  - Headache [None]
  - Feeling abnormal [None]
  - Eye swelling [None]
  - Muscular weakness [None]

NARRATIVE: CASE EVENT DATE: 20170801
